FAERS Safety Report 8963019 (Version 1)
Quarter: 2012Q4

REPORT INFORMATION
  Report Type: 
  Country: US (occurrence: US)
  Receive Date: 20121214
  Receipt Date: 20121214
  Transmission Date: 20130627
  Serious: Yes (Other)
  Sender: FDA-Public Use
  Company Number: US-AMGEN-USASP2012080151

PATIENT
  Age: 92 Year
  Sex: Male
  Weight: 63.49 kg

DRUGS (5)
  1. PROCRIT [Suspect]
     Indication: ANAEMIA
     Dosage: 10000 unit, qwk
     Route: 058
  2. AMIODARONE [Concomitant]
     Indication: HEART RATE
     Dosage: UNK
     Route: 048
  3. ATIVAN [Concomitant]
     Dosage: 0.5 mg, as needed
     Route: 048
  4. UROXATRAL [Concomitant]
     Indication: RENAL DISORDER
     Dosage: UNK
     Route: 048
  5. LEVOTHYROXINE [Concomitant]
     Indication: HYPOTHYROIDISM
     Dosage: UNK
     Route: 048

REACTIONS (3)
  - Asthenia [Not Recovered/Not Resolved]
  - Decreased appetite [Not Recovered/Not Resolved]
  - Weight decreased [Not Recovered/Not Resolved]
